FAERS Safety Report 18943413 (Version 1)
Quarter: 2021Q1

REPORT INFORMATION
  Report Type: Spontaneous
  Country: DE (occurrence: DE)
  Receive Date: 20210226
  Receipt Date: 20210226
  Transmission Date: 20210420
  Serious: Yes (Hospitalization)
  Sender: FDA-Public Use
  Company Number: DE-ALKEM LABORATORIES LIMITED-DE-ALKEM-2021-00926

PATIENT
  Age: 16 Year
  Sex: Male
  Weight: 95 kg

DRUGS (2)
  1. NOVAMINSULFON [Suspect]
     Active Substance: METAMIZOLE
     Indication: INFECTION
     Dosage: UNK
     Route: 065
     Dates: start: 20190214
  2. CEFUROXIME AXETIL. [Suspect]
     Active Substance: CEFUROXIME AXETIL
     Indication: INFECTION
     Dosage: UNK
     Route: 065
     Dates: start: 20190209, end: 20190214

REACTIONS (6)
  - Hypoaesthesia [Not Recovered/Not Resolved]
  - CSF test abnormal [Not Recovered/Not Resolved]
  - Paraesthesia [Not Recovered/Not Resolved]
  - Dyschezia [Not Recovered/Not Resolved]
  - Dysuria [Not Recovered/Not Resolved]
  - Vomiting [Not Recovered/Not Resolved]

NARRATIVE: CASE EVENT DATE: 20190215
